FAERS Safety Report 4739693-8 (Version None)
Quarter: 2005Q3

REPORT INFORMATION
  Report Type: 
  Country: None (occurrence: None)
  Receive Date: 20050810
  Receipt Date: 20050427
  Transmission Date: 20060218
  Serious: No
  Sender: FDA-Public Use
  Company Number: US-GLAXOSMITHKLINE-A0556003A

PATIENT
  Age: 45 Year
  Sex: Female

DRUGS (4)
  1. PAXIL [Suspect]
     Dosage: 20MG PER DAY
     Route: 048
     Dates: start: 20050419, end: 20050426
  2. PERCOCET [Concomitant]
  3. VALIUM [Concomitant]
  4. ADVAIR DISKUS 100/50 [Concomitant]

REACTIONS (4)
  - CRYING [None]
  - DRUG WITHDRAWAL SYNDROME [None]
  - MOOD SWINGS [None]
  - SOMNOLENCE [None]
